FAERS Safety Report 6523369-0 (Version None)
Quarter: 2009Q4

REPORT INFORMATION
  Report Type: 
  Country: None (occurrence: None)
  Receive Date: 20091231
  Receipt Date: 20091228
  Transmission Date: 20100525
  Serious: Yes (Hospitalization)
  Sender: FDA-Public Use
  Company Number: NL-ROCHE-675311

PATIENT
  Sex: Female
  Weight: 75.6 kg

DRUGS (7)
  1. CAPECITABINE [Suspect]
     Indication: GASTRIC CANCER
     Dosage: WITH A MEAL OR SNACK FROM DAY 1-14 EVERY 3 WEEKS (ROUTE, FORM AND DOSING REGIMEN PER PROTOCOL)
     Route: 048
     Dates: start: 20090619
  2. EPIRUBICIN [Suspect]
     Indication: GASTRIC CANCER
     Dosage: ON DAY 1 AS AN INTRAVENOUS PUSH EVERY 3 WEEKS IMMEDIATE PRIOR TO THE CISPLATIN. (PER PROTOCOL)
     Route: 042
     Dates: start: 20090619
  3. CISPLATIN [Suspect]
     Indication: GASTRIC CANCER
     Dosage: ON DAY 1 INTRAVENOUSLY EVERY 3 WEEKS WITH HYDRATION (PER PROTOCOL)
     Route: 042
     Dates: start: 20090619
  4. ACENOCOUMAROL [Concomitant]
     Dosage: START DATE REPORTED AS ^AT HOME^, DOSE REPORTED AS VIGS SCHEME
     Route: 048
  5. LANOXIN [Concomitant]
     Dosage: DOSE REPORTED AS Q125 1X1, START DATE REPORTED AS ^AT HOME^.
     Route: 048
  6. LACTULOSE [Concomitant]
     Dosage: DOSE REPORTED AS : 3X15 ECC, START DATE REPORTED AS ^AT HOME^.
     Route: 048
  7. PARACETAMOL [Concomitant]
     Dosage: DOSE REPORTED AS 500 MG 2 N, START DATE REPORTED AS ^AT HOME^.
     Route: 048

REACTIONS (2)
  - FATIGUE [None]
  - POOR PERSONAL HYGIENE [None]
